FAERS Safety Report 7530043-0 (Version None)
Quarter: 2011Q2

REPORT INFORMATION
  Report Type: 
  Country: None (occurrence: None)
  Receive Date: 20110607
  Receipt Date: 20110524
  Transmission Date: 20111010
  Serious: Yes (Hospitalization)
  Sender: FDA-Public Use
  Company Number: PHHY2011US45105

PATIENT
  Sex: Female

DRUGS (8)
  1. RECLAST [Suspect]
     Indication: OSTEOPOROSIS
     Dosage: 5 MG/100 ML
     Route: 042
     Dates: start: 20110516
  2. XANAX [Concomitant]
  3. LIPODERM OMEGA [Concomitant]
  4. PROTONIX [Concomitant]
  5. BENTYL [Concomitant]
  6. TRAMADOL HCL [Concomitant]
  7. SYNTHROID [Concomitant]
  8. MORPHINE [Concomitant]

REACTIONS (2)
  - PLEURISY [None]
  - DYSPNOEA [None]
